FAERS Safety Report 21651687 (Version 1)
Quarter: 2022Q4

REPORT INFORMATION
  Report Type: Spontaneous
  Country: CZ (occurrence: CZ)
  Receive Date: 20221128
  Receipt Date: 20221128
  Transmission Date: 20230113
  Serious: Yes (Life-Threatening, Hospitalization, Other)
  Sender: FDA-Public Use
  Company Number: CZ-SA-2022SA482942

PATIENT
  Age: 54 Year
  Sex: Male

DRUGS (4)
  1. ENOXAPARIN SODIUM [Suspect]
     Active Substance: ENOXAPARIN SODIUM
     Indication: Venous thrombosis
     Dosage: 1 ML, QD
     Route: 058
     Dates: start: 2021
  2. ENOXAPARIN SODIUM [Suspect]
     Active Substance: ENOXAPARIN SODIUM
     Indication: Pulmonary embolism
  3. APIXABAN [Suspect]
     Active Substance: APIXABAN
     Indication: Venous thrombosis
     Dosage: 5 MG, Q12H
     Dates: start: 2021
  4. OXYGEN [Concomitant]
     Active Substance: OXYGEN
     Dosage: 10 L, QMN
     Dates: start: 2021

REACTIONS (7)
  - Emphysema [Unknown]
  - Pulmonary congestion [Unknown]
  - Pulmonary fibrosis [Unknown]
  - Pulmonary haemorrhage [Not Recovered/Not Resolved]
  - Pulmonary haematoma [Not Recovered/Not Resolved]
  - Haemothorax [Not Recovered/Not Resolved]
  - Pulmonary alveolar haemorrhage [Unknown]
